FAERS Safety Report 11229275 (Version 1)
Quarter: 2015Q2

REPORT INFORMATION
  Report Type: Spontaneous
  Country: US (occurrence: US)
  Receive Date: 20150630
  Receipt Date: 20150630
  Transmission Date: 20150821
  Serious: No
  Sender: FDA-Public Use
  Company Number: US-ELITE PHARMACEUTICALS, INC.-2014ELT00004

PATIENT

DRUGS (1)
  1. NALTREXONE HYDROCHLORIDE. [Suspect]
     Active Substance: NALTREXONE HYDROCHLORIDE

REACTIONS (1)
  - Tremor [Not Recovered/Not Resolved]
